FAERS Safety Report 20504884 (Version 1)
Quarter: 2022Q1

REPORT INFORMATION
  Report Type: Spontaneous
  Country: NZ (occurrence: None)
  Receive Date: 20220223
  Receipt Date: 20220223
  Transmission Date: 20220423
  Serious: Yes (Hospitalization, Other)
  Sender: FDA-Public Use
  Company Number: NZ-INFO-001405

PATIENT
  Age: 61 Year
  Sex: Female

DRUGS (1)
  1. ZOLEDRONIC ACID [Suspect]
     Active Substance: ZOLEDRONIC ACID
     Indication: Osteoporosis
     Dosage: FIRST INFUSION
     Route: 065

REACTIONS (4)
  - Iridocyclitis [Recovered/Resolved]
  - Scleritis [Recovered/Resolved]
  - Optic neuritis [Recovered/Resolved]
  - Off label use [Recovered/Resolved]
